FAERS Safety Report 5851947-0 (Version None)
Quarter: 2008Q3

REPORT INFORMATION
  Report Type: 
  Country: None (occurrence: None)
  Receive Date: 20080820
  Receipt Date: 20080808
  Transmission Date: 20090109
  Serious: Yes (Death, Other)
  Sender: FDA-Public Use
  Company Number: US-PFIZER INC-2006078558

PATIENT
  Sex: Male

DRUGS (14)
  1. NEURONTIN [Suspect]
     Indication: PAIN
  2. BUPRENORPHINE HCL [Concomitant]
  3. FLEXERIL [Concomitant]
     Dates: start: 20030325
  4. LEXAPRO [Concomitant]
     Dates: start: 20040504
  5. CELEXA [Concomitant]
     Dates: start: 20030103
  6. FENTANYL-25 [Concomitant]
     Route: 062
     Dates: start: 20040415
  7. ATIVAN [Concomitant]
     Dates: start: 20040416
  8. SEROQUEL [Concomitant]
     Dates: start: 20040416
  9. DESYREL [Concomitant]
     Dates: start: 20040416
  10. TRAZODONE HCL [Concomitant]
     Dates: start: 20040416
  11. HYDROCODONE BITARTRATE [Concomitant]
     Dates: start: 20040416
  12. MOTRIN [Concomitant]
     Dates: start: 20040425
  13. VIOXX [Concomitant]
     Dates: start: 20030522
  14. DURAGESIC-100 [Concomitant]

REACTIONS (3)
  - ASPHYXIA [None]
  - COMPLETED SUICIDE [None]
  - DRUG INEFFECTIVE [None]
